FAERS Safety Report 5207530-3 (Version None)
Quarter: 2006Q4

REPORT INFORMATION
  Report Type: 
  Country: None (occurrence: None)
  Receive Date: 20061030
  Receipt Date: 20060811
  Transmission Date: 20070319
  Serious: No
  Sender: FDA-Public Use
  Company Number: 2006CT000626

PATIENT
  Age: 58 Year
  Sex: Female
  Weight: 79.6 kg

DRUGS (8)
  1. VENTAVIS [Suspect]
     Indication: PULMONARY HYPERTENSION
     Dosage: 5 UG; 7XD; INH
     Route: 055
     Dates: start: 20060531
  2. WARFARIN SODIUM [Concomitant]
  3. SILDENAFIL CITRATE [Concomitant]
  4. POTASSIUM CHLORIDE [Concomitant]
  5. PEPCID [Concomitant]
  6. TYLENOL [Concomitant]
  7. SOTALOL HYDROCHLORIDE [Concomitant]
  8. CLONIDINE [Concomitant]

REACTIONS (5)
  - DIARRHOEA [None]
  - DIZZINESS [None]
  - FLUSHING [None]
  - MYALGIA [None]
  - PAIN IN JAW [None]
